FAERS Safety Report 5264182-4 (Version None)
Quarter: 2007Q1

REPORT INFORMATION
  Report Type: 
  Country: None (occurrence: None)
  Receive Date: 20070313
  Receipt Date: 20070307
  Transmission Date: 20070707
  Serious: Yes (Death)
  Sender: FDA-Public Use
  Company Number: TH-BOEHRINGER INGELHEIM PHARMACEUTICALS, INC.-2007-DE-01393GD

PATIENT
  Age: 1 Year
  Sex: Male

DRUGS (1)
  1. TRIOMUNE [Suspect]
     Indication: HIV INFECTION

REACTIONS (1)
  - SEPSIS [None]
